FAERS Safety Report 11327847 (Version 1)
Quarter: 2015Q3

REPORT INFORMATION
  Report Type: Report from Study
  Country: US (occurrence: US)
  Receive Date: 20150731
  Receipt Date: 20150731
  Transmission Date: 20151125
  Serious: Yes (Other)
  Sender: FDA-Public Use
  Company Number: US-BAYER-2014-129099

PATIENT
  Age: 74 Year
  Sex: Male

DRUGS (3)
  1. NEXAVAR [Suspect]
     Active Substance: SORAFENIB
     Indication: METASTASES TO BONE MARROW
  2. NEXAVAR [Suspect]
     Active Substance: SORAFENIB
     Indication: HEPATIC CANCER
     Dosage: 400 MG, BID
     Route: 048
     Dates: start: 20140806
  3. NEXAVAR [Suspect]
     Active Substance: SORAFENIB
     Indication: METASTASES TO BONE
     Dosage: 400 MG, BID
     Route: 048

REACTIONS (19)
  - Rash [Not Recovered/Not Resolved]
  - Stomatitis [None]
  - Dry skin [None]
  - Exostosis [None]
  - Drug dose omission [None]
  - Limb discomfort [None]
  - Blister [Recovering/Resolving]
  - Diarrhoea [None]
  - Muscle spasms [None]
  - Pruritus [None]
  - Pain of skin [None]
  - Weight decreased [None]
  - Rash pruritic [None]
  - Weight decreased [None]
  - Hyperkeratosis [None]
  - Alopecia [None]
  - Skin neoplasm excision [None]
  - Dysphonia [None]
  - Rash [None]

NARRATIVE: CASE EVENT DATE: 20140826
